FAERS Safety Report 5285786-9 (Version None)
Quarter: 2007Q1

REPORT INFORMATION
  Report Type: 
  Country: None (occurrence: None)
  Receive Date: 20070126
  Receipt Date: 20060606
  Transmission Date: 20070707
  Serious: No
  Sender: FDA-Public Use
  Company Number: 2006CT001074

PATIENT
  Age: 37 Year
  Sex: Female
  Weight: 101.6 kg

DRUGS (27)
  1. VENTAVIS [Suspect]
     Indication: PULMONARY HYPERTENSION
     Dosage: SEE IMAGE
     Route: 055
     Dates: start: 20050803, end: 20060511
  2. VENTAVIS [Suspect]
     Indication: PULMONARY HYPERTENSION
     Dosage: SEE IMAGE
     Route: 055
     Dates: start: 20060512, end: 20060525
  3. VENTAVIS [Suspect]
     Indication: PULMONARY HYPERTENSION
     Dosage: SEE IMAGE
     Route: 055
     Dates: start: 20060512, end: 20060525
  4. VENTAVIS [Suspect]
     Indication: PULMONARY HYPERTENSION
     Dosage: SEE IMAGE
     Route: 055
     Dates: start: 20060526, end: 20060530
  5. VENTAVIS [Suspect]
     Indication: PULMONARY HYPERTENSION
     Dosage: SEE IMAGE
     Route: 055
     Dates: start: 20060526, end: 20060530
  6. WARFARIN SODIUM [Concomitant]
  7. TRACLEER [Concomitant]
  8. SPIRONOLACTONE [Concomitant]
  9. METOLAZONE [Concomitant]
  10. SINEMET [Concomitant]
  11. K-DUR 10 [Concomitant]
  12. TOPAMAX [Concomitant]
  13. AMLODIPINE [Concomitant]
  14. ADVAIR DISKUS 100/50 [Concomitant]
  15. DIHYDROERGOTAMINE MESYLATE [Concomitant]
  16. ATENOLOL [Concomitant]
  17. XANAX [Concomitant]
  18. OXYGEN [Concomitant]
  19. TORADOL [Concomitant]
  20. DIPHENHYDRAMINE HCL [Concomitant]
  21. ALBUTEROL [Concomitant]
  22. ELAVIL [Concomitant]
  23. LASIX [Concomitant]
  24. VICODIN [Concomitant]
  25. DILAUDID [Concomitant]
  26. ATORVASTATIN CALCIUM [Concomitant]
  27. METFORMIN HCL [Concomitant]

REACTIONS (9)
  - CHEST PAIN [None]
  - DIARRHOEA [None]
  - DYSPHONIA [None]
  - FEELING JITTERY [None]
  - FLUSHING [None]
  - FORMICATION [None]
  - HEADACHE [None]
  - INSOMNIA [None]
  - PALPITATIONS [None]
